FAERS Safety Report 4417741-2 (Version None)
Quarter: 2004Q3

REPORT INFORMATION
  Report Type: 
  Country: None (occurrence: None)
  Receive Date: 20040803
  Receipt Date: 20040721
  Transmission Date: 20050211
  Serious: Yes (Death)
  Sender: FDA-Public Use
  Company Number: JP-JNJFOC-20031002887

PATIENT
  Age: 23 Year
  Sex: Male

DRUGS (4)
  1. FENTANYL [Suspect]
     Indication: CANCER PAIN
     Dosage: 2.5 MG 1 IN 72 HOUR TRANSDERMAL
     Route: 062
     Dates: start: 20030922, end: 20030927
  2. MORPHINE HYDROCHLORIDE [Concomitant]
     Indication: CANCER PAIN
  3. DROPERIDOL [Concomitant]
     Indication: NAUSEA
  4. FLURBIPROXEN AXETIL (FLURBIPROXEN AXETIL) [Suspect]

REACTIONS (1)
  - CARDIAC FAILURE ACUTE [None]
